FAERS Safety Report 6975160-9 (Version None)
Quarter: 2010Q3

REPORT INFORMATION
  Report Type: 
  Country: None (occurrence: None)
  Receive Date: 20100910
  Receipt Date: 20090324
  Transmission Date: 20110219
  Serious: No
  Sender: FDA-Public Use
  Company Number: US-WYE-H08135309

PATIENT
  Sex: Female
  Weight: 68.1 kg

DRUGS (5)
  1. PRISTIQ [Suspect]
     Indication: DEPRESSION
     Route: 048
     Dates: start: 20090108, end: 20090124
  2. PRISTIQ [Suspect]
     Route: 048
     Dates: start: 20090125
  3. VITAMINS [Concomitant]
  4. XANAX [Concomitant]
  5. METHADONE [Concomitant]

REACTIONS (4)
  - DRUG INEFFECTIVE [None]
  - FEELING ABNORMAL [None]
  - FEELING JITTERY [None]
  - SLEEP DISORDER [None]
